FAERS Safety Report 21439598 (Version 2)
Quarter: 2022Q4

REPORT INFORMATION
  Report Type: Report from Study
  Country: CN (occurrence: CN)
  Receive Date: 20221011
  Receipt Date: 20221216
  Transmission Date: 20230113
  Serious: Yes (Hospitalization)
  Sender: FDA-Public Use
  Company Number: CN-PFIZER INC-PV202200074642

PATIENT
  Age: 49 Year
  Sex: Female
  Weight: 53 kg

DRUGS (5)
  1. EPIRUBICIN HYDROCHLORIDE [Suspect]
     Active Substance: EPIRUBICIN HYDROCHLORIDE
     Indication: Triple negative breast cancer
     Dosage: Q2W, EVERY 14 DAYS 3 DAYS
     Route: 042
     Dates: start: 20220301, end: 20220419
  2. INVESTIGATIONAL PRODUCT [Suspect]
     Active Substance: INVESTIGATIONAL PRODUCT
     Indication: Triple negative breast cancer
     Dosage: Q2W, EVERY 14 DAYS 3 DAYS
     Route: 042
     Dates: start: 20211030, end: 20220601
  3. PACLITAXEL [Suspect]
     Active Substance: PACLITAXEL
     Indication: Triple negative breast cancer
     Dosage: ADMINISTRATION ON D1, D8, AND D15 (3-WEEK DOSING FOLLOWED BY ONE-WEEK INTERVAL)
     Route: 042
     Dates: start: 20211030, end: 20220214
  4. CARBOPLATIN [Suspect]
     Active Substance: CARBOPLATIN
     Indication: Triple negative breast cancer
     Dosage: AUC 1.5, ADMINISTRATION ON D1, D8, AND D15 (3-WEEK DOSING FOLLOWED BY ONE-WEEK INTERVAL)
     Route: 042
     Dates: start: 20211030, end: 20220214
  5. CYCLOPHOSPHAMIDE [Suspect]
     Active Substance: CYCLOPHOSPHAMIDE
     Indication: Triple negative breast cancer
     Dosage: Q2W, EVERY 14 DAYS 3 DAYS
     Route: 042
     Dates: start: 20220301, end: 20220419

REACTIONS (1)
  - Alanine aminotransferase increased [Recovered/Resolved]

NARRATIVE: CASE EVENT DATE: 20220716
